FAERS Safety Report 6828567-4 (Version None)
Quarter: 2010Q3

REPORT INFORMATION
  Report Type: 
  Country: None (occurrence: None)
  Receive Date: 20100709
  Receipt Date: 20070213
  Transmission Date: 20110219
  Serious: Yes (Hospitalization, Other)
  Sender: FDA-Public Use
  Company Number: US-PFIZER INC-2007012002

PATIENT
  Sex: Female

DRUGS (2)
  1. CHANTIX [Suspect]
     Indication: EX-TOBACCO USER
     Route: 048
     Dates: start: 20061201, end: 20061204
  2. XANAX [Concomitant]
     Indication: SLEEP DISORDER
     Route: 048

REACTIONS (2)
  - CONVULSION [None]
  - MYOCARDIAL INFARCTION [None]
